FAERS Safety Report 8463818-4 (Version None)
Quarter: 2012Q2

REPORT INFORMATION
  Report Type: 
  Country: None (occurrence: None)
  Receive Date: 20120625
  Receipt Date: 19990714
  Transmission Date: 20120825
  Serious: Yes (Hospitalization)
  Sender: FDA-Public Use
  Company Number: US-BRISTOL-MYERS SQUIBB COMPANY-10049583

PATIENT
  Age: 38 Year
  Sex: Female
  Weight: 83 kg

DRUGS (2)
  1. MONOPRIL [Suspect]
     Indication: BLOOD PRESSURE
  2. LUPRON DEPOT [Suspect]
     Indication: ENDOMETRIOSIS
     Route: 030
     Dates: start: 19990304, end: 19990401

REACTIONS (2)
  - ANGIOEDEMA [None]
  - URTICARIA [None]
